FAERS Safety Report 21646546 (Version 1)
Quarter: 2022Q4

REPORT INFORMATION
  Report Type: Spontaneous
  Country: DK (occurrence: DK)
  Receive Date: 20221126
  Receipt Date: 20221126
  Transmission Date: 20230113
  Serious: Yes (Death, Hospitalization)
  Sender: FDA-Public Use
  Company Number: None

PATIENT
  Age: 67 Year
  Sex: Male

DRUGS (2)
  1. OXYCODONE HYDROCHLORIDE [Suspect]
     Active Substance: OXYCODONE HYDROCHLORIDE
     Indication: Pain
     Dosage: STRENGTH: 60 MG, UNIT DOSE: 120MG, FREQ TIME 1 DAY
     Dates: start: 20220607
  2. GABAPENSTAD [Concomitant]
     Indication: Neuralgia
     Dates: start: 20220621

REACTIONS (4)
  - Poisoning [Fatal]
  - Somnolence [Fatal]
  - Hepatic enzyme increased [Fatal]
  - Confusional state [Fatal]

NARRATIVE: CASE EVENT DATE: 20221001
